FAERS Safety Report 25622308 (Version 1)
Quarter: 2025Q3

REPORT INFORMATION
  Report Type: Report from Study
  Country: GB (occurrence: GB)
  Receive Date: 20250730
  Receipt Date: 20250730
  Transmission Date: 20251021
  Serious: Yes (Other)
  Sender: SAMSUNG BIOEPIS
  Company Number: GB-SAMSUNG BIOEPIS-SB-2025-25754

PATIENT
  Age: 60 Year
  Sex: Female
  Weight: 49 kg

DRUGS (7)
  1. IMRALDI [Suspect]
     Active Substance: ADALIMUMAB
     Indication: Psoriasis
     Dates: start: 20210713
  2. BIOTIN [Concomitant]
     Active Substance: BIOTIN
     Indication: Product used for unknown indication
     Dates: start: 20210801
  3. PROBIOTICS NOS [Concomitant]
     Active Substance: PROBIOTICS NOS
     Indication: Product used for unknown indication
     Dates: start: 20210801
  4. VITAMIN B12 [Concomitant]
     Active Substance: CYANOCOBALAMIN
     Indication: Product used for unknown indication
     Dates: start: 20211001
  5. CODEINE [Concomitant]
     Active Substance: CODEINE
     Indication: Product used for unknown indication
     Dates: start: 20220613
  6. ROSUVASTATIN [Concomitant]
     Active Substance: ROSUVASTATIN
     Indication: Product used for unknown indication
     Dates: start: 20230202
  7. SULFASALAZINE [Concomitant]
     Active Substance: SULFASALAZINE
     Indication: Product used for unknown indication
     Dates: start: 20241104

REACTIONS (1)
  - Vulvar dysplasia [Recovered/Resolved with Sequelae]

NARRATIVE: CASE EVENT DATE: 20231101
